FAERS Safety Report 8856648 (Version 1)
Quarter: 2012Q4

REPORT INFORMATION
  Report Type: Spontaneous
  Country: US (occurrence: None)
  Receive Date: 20121024
  Receipt Date: 20121024
  Transmission Date: 20130627
  Serious: Yes (Other)
  Sender: FDA-Public Use
  Company Number: None

PATIENT
  Sex: Male
  Weight: 66.7 kg

DRUGS (1)
  1. METHYLPREDNISOLONE [Suspect]
     Indication: LUMBAR SPONDYLOSIS WITH SCOLIOSIS AND ARTHRITIS
     Dosage: 1.5 mg/ml to each joint once Epidural
     Route: 008

REACTIONS (3)
  - Product contamination [None]
  - Poor quality drug administered [None]
  - Headache [None]
